FAERS Safety Report 7379860-0 (Version None)
Quarter: 2011Q1

REPORT INFORMATION
  Report Type: 
  Country: None (occurrence: None)
  Receive Date: 20110329
  Receipt Date: 20110315
  Transmission Date: 20110831
  Serious: Yes (Hospitalization)
  Sender: FDA-Public Use
  Company Number: US-JNJFOC-20110104466

PATIENT
  Sex: Female
  Weight: 45.81 kg

DRUGS (3)
  1. METHOTREXATE [Concomitant]
     Indication: RHEUMATOID ARTHRITIS
     Dosage: WEEKLY
     Route: 048
  2. REMICADE [Suspect]
     Indication: RHEUMATOID ARTHRITIS
     Route: 065
  3. OTHER THERAPEUTIC MEDICATIONS [Concomitant]

REACTIONS (3)
  - DEMENTIA [None]
  - MENTAL STATUS CHANGES [None]
  - ABNORMAL LOSS OF WEIGHT [None]
